FAERS Safety Report 11731993 (Version 1)
Quarter: 2015Q4

REPORT INFORMATION
  Report Type: Spontaneous
  Country: US (occurrence: US)
  Receive Date: 20151110
  Receipt Date: 20151110
  Transmission Date: 20160304
  Serious: No
  Sender: FDA-Public Use
  Company Number: US-ELI_LILLY_AND_COMPANY-US201203008044

PATIENT
  Age: 66 Year
  Sex: Male

DRUGS (2)
  1. FORTEO [Suspect]
     Active Substance: TERIPARATIDE
     Indication: OSTEOPOROSIS
     Dosage: 20 UG, QD
     Dates: start: 20120210
  2. ANALGESICS [Concomitant]
     Active Substance: UNSPECIFIED INGREDIENT
     Indication: PAIN

REACTIONS (13)
  - Apathy [Unknown]
  - Bone pain [Recovered/Resolved]
  - Sleep disorder due to a general medical condition [Unknown]
  - Muscle disorder [Unknown]
  - Pain [Unknown]
  - Myalgia [Recovered/Resolved]
  - Pain in extremity [Unknown]
  - Bone pain [Unknown]
  - Gait disturbance [Unknown]
  - Asthenia [Unknown]
  - Gait disturbance [Unknown]
  - Feeling abnormal [Unknown]
  - Limb discomfort [Unknown]

NARRATIVE: CASE EVENT DATE: 20120325
